FAERS Safety Report 16231609 (Version 2)
Quarter: 2019Q2

REPORT INFORMATION
  Report Type: Spontaneous
  Country: JP (occurrence: JP)
  Receive Date: 20190424
  Receipt Date: 20190528
  Transmission Date: 20190711
  Serious: Yes (Death, Hospitalization, Congenital Anomaly, Other)
  Sender: FDA-Public Use
  Company Number: JP-BRISTOL-MYERS SQUIBB COMPANY-BMS-2019-038224

PATIENT

DRUGS (1)
  1. METGLUCO [Suspect]
     Active Substance: METFORMIN HYDROCHLORIDE
     Indication: PRODUCT USED FOR UNKNOWN INDICATION
     Dosage: UNK
     Route: 064

REACTIONS (13)
  - Congenital eye disorder [Fatal]
  - Joint contracture [Fatal]
  - Skin laceration [Fatal]
  - External auditory canal atresia [Fatal]
  - Single umbilical artery [Fatal]
  - Pulmonary hypoplasia [Fatal]
  - Micrognathia [Fatal]
  - Congenital hand malformation [Fatal]
  - Premature baby [Unknown]
  - Pulmonary haemorrhage [Fatal]
  - Neonatal respiratory acidosis [Fatal]
  - Foetal exposure during pregnancy [Unknown]
  - Constricted ear deformity [Fatal]
